FAERS Safety Report 5458241-0 (Version None)
Quarter: 2007Q3

REPORT INFORMATION
  Report Type: 
  Country: None (occurrence: None)
  Receive Date: 20070919
  Receipt Date: 20070320
  Transmission Date: 20080115
  Serious: Yes (Hospitalization)
  Sender: FDA-Public Use
  Company Number: US-ASTRAZENECA-2007UW05565

PATIENT
  Age: 54 Year
  Sex: Female

DRUGS (7)
  1. SEROQUEL [Suspect]
     Route: 048
     Dates: start: 20040101
  2. PHENIGAN [Concomitant]
  3. ZANTAC 150 [Concomitant]
  4. PROVENTIL GENTLEHALER [Concomitant]
  5. CHOLESTEROL PILL [Concomitant]
  6. SUGAR PILL [Concomitant]
  7. NERVE PILL [Concomitant]

REACTIONS (1)
  - CONVULSION [None]
